FAERS Safety Report 10477645 (Version 7)
Quarter: 2015Q2

REPORT INFORMATION
  Report Type: Spontaneous
  Country: US (occurrence: US)
  Receive Date: 20140926
  Receipt Date: 20150507
  Transmission Date: 20150821
  Serious: Yes (Death)
  Sender: FDA-Public Use
  Company Number: US-JNJFOC-20140923588

PATIENT
  Age: 7 Decade
  Sex: Female

DRUGS (2)
  1. XARELTO [Suspect]
     Active Substance: RIVAROXABAN
     Indication: THROMBOSIS PROPHYLAXIS
     Route: 048
  2. XARELTO [Suspect]
     Active Substance: RIVAROXABAN
     Indication: JOINT ARTHROPLASTY
     Route: 048

REACTIONS (3)
  - Myocardial infarction [Fatal]
  - Gastrointestinal haemorrhage [Fatal]
  - Hypotension [Fatal]
